FAERS Safety Report 22294077 (Version 1)
Quarter: 2023Q2

REPORT INFORMATION
  Report Type: Report from Study
  Country: US (occurrence: US)
  Receive Date: 20230508
  Receipt Date: 20230508
  Transmission Date: 20230721
  Serious: No
  Sender: FDA-Public Use
  Company Number: US-002147023-NVSC2023US104361

PATIENT
  Sex: Female

DRUGS (10)
  1. METHOTREXATE [Suspect]
     Active Substance: METHOTREXATE
     Indication: Psoriasis
     Dosage: UNK
     Route: 065
  2. CLOBETASOL [Suspect]
     Active Substance: CLOBETASOL
     Indication: Psoriasis
     Dosage: UNK
     Route: 061
  3. HYDROCORTISONE [Suspect]
     Active Substance: HYDROCORTISONE
     Indication: Psoriasis
     Dosage: UNK
     Route: 061
  4. ALLOPURINOL [Suspect]
     Active Substance: ALLOPURINOL
     Indication: Psoriasis
     Dosage: 300 MG
     Route: 048
  5. AMIODARONE [Suspect]
     Active Substance: AMIODARONE
     Indication: Psoriasis
     Dosage: 200 MG/KG
     Route: 048
  6. ATORVASTATIN [Suspect]
     Active Substance: ATORVASTATIN
     Indication: Psoriasis
     Dosage: 80 MG
     Route: 048
  7. METOPROLOL TARTRATE [Suspect]
     Active Substance: METOPROLOL TARTRATE
     Indication: Psoriasis
     Dosage: 25 MG
     Route: 048
  8. CLOPIDOGREL [Suspect]
     Active Substance: CLOPIDOGREL BISULFATE
     Indication: Psoriasis
     Dosage: 75 MG
     Route: 048
  9. COLCHICINE [Suspect]
     Active Substance: COLCHICINE
     Indication: Psoriasis
     Dosage: 0.6 MG
     Route: 048
  10. METHOCARBAMOL [Suspect]
     Active Substance: METHOCARBAMOL
     Indication: Psoriasis
     Dosage: 500 MG
     Route: 048

REACTIONS (1)
  - Drug ineffective [Unknown]
